FAERS Safety Report 6836106-7 (Version None)
Quarter: 2010Q3

REPORT INFORMATION
  Report Type: 
  Country: None (occurrence: None)
  Receive Date: 20100713
  Receipt Date: 20100702
  Transmission Date: 20110219
  Serious: Yes (Death, Hospitalization)
  Sender: FDA-Public Use
  Company Number: KR-ROCHE-711261

PATIENT
  Age: 31 Year
  Sex: Male
  Weight: 85.5 kg

DRUGS (4)
  1. CAPECITABINE [Suspect]
     Indication: METASTATIC GASTRIC CANCER
     Route: 048
     Dates: start: 20090811, end: 20100607
  2. SUNITINIB MALATE [Suspect]
     Indication: METASTATIC GASTRIC CANCER
     Dosage: DRUG NAME: SUTENE
     Route: 048
     Dates: start: 20090811, end: 20100606
  3. ELOXATIN [Suspect]
     Indication: METASTATIC GASTRIC CANCER
     Route: 042
     Dates: start: 20090811, end: 20091210
  4. ACETAMINOPHEN [Concomitant]
     Indication: PAIN
     Dates: start: 20100601

REACTIONS (3)
  - PNEUMONIA [None]
  - PULMONARY EMBOLISM [None]
  - PULMONARY HYPERTENSION [None]
